FAERS Safety Report 5157502-2 (Version None)
Quarter: 2006Q4

REPORT INFORMATION
  Report Type: 
  Country: None (occurrence: None)
  Receive Date: 20061127
  Receipt Date: 20060804
  Transmission Date: 20070319
  Serious: Yes (Death, Life-Threatening, Hospitalization, Disabling)
  Sender: FDA-Public Use
  Company Number: JP-JPN-A200603000

PATIENT
  Age: 68 Year
  Sex: Male
  Weight: 65 kg

DRUGS (24)
  1. ZEFIX [Suspect]
     Indication: HEPATITIS B
     Route: 048
     Dates: start: 20060605, end: 20060814
  2. MUCODYNE [Concomitant]
     Indication: BRONCHITIS
     Dosage: 1500MG PER DAY
     Route: 048
     Dates: start: 20060616, end: 20060817
  3. LACTULOSE [Concomitant]
     Indication: HEPATIC ENCEPHALOPATHY
     Dosage: 60ML PER DAY
     Route: 048
     Dates: start: 20060725, end: 20060814
  4. PERSANTIN [Concomitant]
     Dosage: 200MG PER DAY
     Route: 048
     Dates: start: 20060616, end: 20060817
  5. PARIET [Concomitant]
     Indication: GASTRIC ULCER
     Dosage: 10MG PER DAY
     Route: 048
     Dates: start: 20060609, end: 20060810
  6. ALDACTONE [Concomitant]
     Indication: ASCITES
     Dosage: 50MG PER DAY
     Route: 048
     Dates: start: 20060731, end: 20060810
  7. PANTOSIN [Concomitant]
     Route: 048
  8. LASIX [Concomitant]
     Indication: ASCITES
     Dosage: 120MG PER DAY
     Route: 048
     Dates: start: 20060731, end: 20060810
  9. URSO [Concomitant]
     Indication: HEPATITIS B
     Dosage: 600MG PER DAY
     Route: 048
     Dates: start: 20060727, end: 20060814
  10. PREDONINE [Concomitant]
     Indication: EOSINOPHILIA
     Dosage: 30MG PER DAY
     Route: 048
     Dates: start: 20060803, end: 20060811
  11. HOKUNALIN [Concomitant]
     Indication: BRONCHITIS
     Dosage: 2MG PER DAY
     Route: 061
     Dates: start: 20060703, end: 20060814
  12. NORVASC [Concomitant]
     Indication: HYPERTENSION
     Dosage: 10MG PER DAY
     Route: 048
     Dates: start: 20060517, end: 20060622
  13. NOVORAPID [Concomitant]
     Indication: DIABETES MELLITUS
     Route: 058
     Dates: start: 20060512
  14. RHYTHMY [Concomitant]
     Indication: INSOMNIA
     Dosage: 1MG PER DAY
     Route: 048
     Dates: start: 20060606, end: 20060622
  15. DAI-KENCHU-TO [Concomitant]
     Indication: ABDOMINAL PAIN
     Dosage: 7.5MG PER DAY
     Route: 048
     Dates: start: 20060610, end: 20060727
  16. KALIMATE [Concomitant]
     Indication: HYPERLIPIDAEMIA
     Dosage: 15MG PER DAY
     Route: 048
     Dates: start: 20060612, end: 20060713
  17. ALLOPURINOL [Concomitant]
     Indication: HYPERURICAEMIA
     Dosage: 100MG PER DAY
     Route: 048
     Dates: start: 20060616, end: 20060706
  18. DEPAS [Concomitant]
     Indication: INSOMNIA
     Dosage: .5MG PER DAY
     Route: 048
     Dates: start: 20060616, end: 20060727
  19. MUCOSOLVAN [Concomitant]
     Indication: BRONCHITIS
     Dosage: 45MG PER DAY
     Route: 048
     Dates: start: 20060628, end: 20060720
  20. MYSLEE [Concomitant]
     Indication: INSOMNIA
     Dosage: 10MG PER DAY
     Route: 048
     Dates: start: 20060622, end: 20060713
  21. MAGNESIUM OXIDE [Concomitant]
     Indication: CONSTIPATION
     Dosage: 1.5MG PER DAY
     Route: 048
     Dates: start: 20060622, end: 20060817
  22. PANTOSIN [Concomitant]
     Indication: CONSTIPATION
     Dosage: 1.5MG PER DAY
     Route: 048
     Dates: start: 20060622, end: 20060817
  23. SERENACE [Concomitant]
     Indication: INSOMNIA
     Dosage: .75MG PER DAY
     Route: 048
     Dates: start: 20060709, end: 20060729
  24. LAC B [Concomitant]
     Indication: DIARRHOEA
     Dosage: 3G PER DAY
     Route: 048
     Dates: start: 20060626, end: 20060727

REACTIONS (4)
  - HEPATIC FAILURE [None]
  - JAUNDICE [None]
  - SEPSIS [None]
  - THROMBOCYTOPENIA [None]
